FAERS Safety Report 7556469-7 (Version None)
Quarter: 2011Q2

REPORT INFORMATION
  Report Type: 
  Country: None (occurrence: None)
  Receive Date: 20110615
  Receipt Date: 20110615
  Transmission Date: 20111010
  Serious: Yes (Hospitalization)
  Sender: FDA-Public Use
  Company Number: None

PATIENT
  Age: 32 Year
  Sex: Male
  Weight: 107.0489 kg

DRUGS (2)
  1. CLOZAPINE [Suspect]
     Indication: SCHIZOAFFECTIVE DISORDER BIPOLAR TYPE
     Dosage: 100MG 9AM + 9PM PO
     Route: 048
     Dates: start: 20110105, end: 20110610
  2. CLOZAPINE [Suspect]
     Dosage: 200MG 9AM + 9PM PO
     Route: 048

REACTIONS (7)
  - DIARRHOEA [None]
  - VOMITING [None]
  - CONSTIPATION [None]
  - NAUSEA [None]
  - FLATULENCE [None]
  - FAECAL INCONTINENCE [None]
  - ABDOMINAL PAIN [None]
